FAERS Safety Report 8946414 (Version 1)
Quarter: 2012Q4

REPORT INFORMATION
  Report Type: 
  Country: US (occurrence: US)
  Receive Date: 20121204
  Receipt Date: 20121204
  Transmission Date: 20130627
  Serious: No
  Sender: FDA-Public Use
  Company Number: US-AMGEN-USASP2012074994

PATIENT
  Age: 60 Year
  Sex: Female

DRUGS (4)
  1. ENBREL [Suspect]
     Indication: RHEUMATOID ARTHRITIS
     Dosage: 50 mg, qwk
     Dates: start: 20120926
  2. PLAQUENIL                          /00072602/ [Concomitant]
     Dosage: 200 mg, bid
  3. LEFLUNOMIDE [Concomitant]
     Dosage: 20 mg, qd
  4. METHOTREXATE [Concomitant]
     Dosage: 12.5 mg, qwk

REACTIONS (4)
  - Pruritus [Recovered/Resolved]
  - Injection site erythema [Not Recovered/Not Resolved]
  - Injection site pruritus [Not Recovered/Not Resolved]
  - Injection site swelling [Not Recovered/Not Resolved]
